FAERS Safety Report 12728157 (Version 1)
Quarter: 2016Q3

REPORT INFORMATION
  Report Type: Spontaneous
  Country: US (occurrence: US)
  Receive Date: 20160909
  Receipt Date: 20160909
  Transmission Date: 20161109
  Serious: No
  Sender: FDA-Public Use
  Company Number: US-BECTON DICKINSON-2016BDN00002

PATIENT

DRUGS (1)
  1. CHLORAPREP WITH TINT [Suspect]
     Active Substance: CHLORHEXIDINE GLUCONATE\ISOPROPYL ALCOHOL
     Indication: INFECTION PROPHYLAXIS
     Dosage: UNK
     Route: 061
     Dates: start: 20150824

REACTIONS (9)
  - Application site inflammation [None]
  - Burning sensation [Unknown]
  - Application site pain [None]
  - Skin haemorrhage [Unknown]
  - Application site haemorrhage [None]
  - Skin abrasion [Unknown]
  - Erythema [Unknown]
  - Inflammation [Unknown]
  - Application site erythema [None]

NARRATIVE: CASE EVENT DATE: 20150824
